FAERS Safety Report 18586338 (Version 1)
Quarter: 2020Q4

REPORT INFORMATION
  Report Type: Spontaneous
  Country: FR (occurrence: FR)
  Receive Date: 20201207
  Receipt Date: 20201207
  Transmission Date: 20210114
  Serious: Yes (Other)
  Sender: FDA-Public Use
  Company Number: FR-009507513-2012FRA000519

PATIENT
  Age: 82 Year
  Sex: Female
  Weight: 80.9 kg

DRUGS (14)
  1. LEVOFLOXACIN. [Suspect]
     Active Substance: LEVOFLOXACIN
     Indication: ENDOPHTHALMITIS
     Dosage: 1000 MILLIGRAM, QD
     Route: 048
     Dates: start: 20191025, end: 20191026
  2. FUROSEMIDE. [Concomitant]
     Active Substance: FUROSEMIDE
     Indication: HYPERTENSION
     Dosage: 20 MILLIGRAM, QD
     Route: 048
  3. PANTOPRAZOLE [Concomitant]
     Active Substance: PANTOPRAZOLE
     Indication: PROPHYLAXIS
     Dosage: 40 MILLIGRAM, QD
     Route: 048
  4. ENALAPRIL MALEATE. [Suspect]
     Active Substance: ENALAPRIL MALEATE
     Indication: HYPERTENSION
     Dosage: 20 MILLIGRAM, QD
     Route: 048
  5. TIENAM 500MG/500MG, POUDRE POUR PERFUSION [Suspect]
     Active Substance: CILASTATIN SODIUM\IMIPENEM
     Indication: ENDOPHTHALMITIS
     Dosage: 1 DOSAGE FORM, Q6H, POWDER FOR PERFUSION
     Route: 042
     Dates: start: 20191025, end: 20191026
  6. ATROPINE. [Concomitant]
     Active Substance: ATROPINE
     Dosage: 2 GTT DROPS, QD
     Route: 047
     Dates: start: 20191025
  7. VANCOMYCIN [Concomitant]
     Active Substance: VANCOMYCIN
     Indication: ENDOPHTHALMITIS
     Dosage: DOSE: 1 (UNITS NOT PROVIDED), ONCE (1 TOTAL)
     Route: 031
     Dates: start: 20191025, end: 20191025
  8. ATORVASTATIN [Concomitant]
     Active Substance: ATORVASTATIN
     Indication: DYSLIPIDAEMIA
     Dosage: 40 MILLIGRAM, QD
     Route: 048
  9. KARDEGIC [Concomitant]
     Active Substance: ASPIRIN DL-LYSINE
     Indication: CARDIOVASCULAR EVENT PROPHYLAXIS
     Dosage: 1 DOSAGE FORM, QD, POWDER FOR ORAL SOLUTION IN SINGLE-DOSE SACHET
     Route: 048
  10. TOBRADEX [Concomitant]
     Active Substance: DEXAMETHASONE\TOBRAMYCIN
     Indication: ENDOPHTHALMITIS
     Dosage: 1 GTT DROPS, Q6H, EYES DROPS IN SUSPENSION
     Route: 047
     Dates: start: 20191025
  11. SERETIDE [Concomitant]
     Active Substance: FLUTICASONE PROPIONATE\SALMETEROL XINAFOATE
     Indication: ASTHMA
     Dosage: 2 DOSAGE FORM, QD
     Route: 055
  12. AMLODIPINE [Concomitant]
     Active Substance: AMLODIPINE BESYLATE
     Indication: HYPERTENSION
     Dosage: 5 MILLIGRAM, QD
     Route: 048
  13. CEFTAZIDIME. [Suspect]
     Active Substance: CEFTAZIDIME
     Indication: ENDOPHTHALMITIS
     Dosage: DOSE: 1 (UNITS NOT PROVIDED), ONCE (1 TOTAL)
     Route: 031
     Dates: start: 20191025, end: 20191025
  14. ZOPICLONE [Concomitant]
     Active Substance: ZOPICLONE
     Indication: INSOMNIA
     Dosage: 3.75 MILLIGRAM, QD
     Route: 048

REACTIONS (3)
  - Dysphagia [Recovered/Resolved]
  - Dyspnoea [Recovered/Resolved]
  - Tongue oedema [Recovered/Resolved]

NARRATIVE: CASE EVENT DATE: 20191026
